FAERS Safety Report 19987912 (Version 2)
Quarter: 2021Q4

REPORT INFORMATION
  Report Type: Spontaneous
  Country: SE (occurrence: SE)
  Receive Date: 20211023
  Receipt Date: 20211027
  Transmission Date: 20220303
  Serious: Yes (Other)
  Sender: FDA-Public Use
  Company Number: SE-ABBVIE-21K-150-4126234-00

PATIENT
  Sex: Male

DRUGS (3)
  1. SEVOFLURANE [Suspect]
     Active Substance: SEVOFLURANE
     Indication: Anaesthesia procedure
     Route: 055
  2. PROPOFOL [Suspect]
     Active Substance: PROPOFOL
     Indication: Anaesthesia
     Dosage: 23 MG/KG
     Route: 042
  3. BUPIVACAINE HYDROCHLORIDE [Concomitant]
     Active Substance: BUPIVACAINE HYDROCHLORIDE
     Indication: Epidural anaesthesia
     Dosage: 1.25-2 MG/KG

REACTIONS (8)
  - Haemorrhage [Unknown]
  - Urine output decreased [Recovered/Resolved]
  - Sodium retention [Unknown]
  - Renin increased [Unknown]
  - Fluid retention [Unknown]
  - Sodium retention [Unknown]
  - Paroxysmal sympathetic hyperactivity [Unknown]
  - Creatinine renal clearance decreased [Unknown]
